FAERS Safety Report 18838214 (Version 1)
Quarter: 2021Q1

REPORT INFORMATION
  Report Type: Spontaneous
  Country: US (occurrence: US)
  Receive Date: 20210203
  Receipt Date: 20210203
  Transmission Date: 20210419
  Serious: No
  Sender: FDA-Public Use
  Company Number: US-ALLERGAN-2048341US

PATIENT
  Sex: Female
  Weight: 61.22 kg

DRUGS (4)
  1. FERROUS SULFATE. [Concomitant]
     Active Substance: FERROUS SULFATE
     Indication: IRON DEFICIENCY
     Dosage: UNK, QD
     Route: 048
  2. TYLENOL [Concomitant]
     Active Substance: ACETAMINOPHEN
     Indication: MIGRAINE
     Dosage: APPROX. 3 TIMES PER MONTH (1?2 TABLETS (325MG) EVERY 6 HRS AS NEEDED)
     Route: 048
  3. BOTOX [Suspect]
     Active Substance: ONABOTULINUMTOXINA
     Dosage: 195 UNITS, SINGLE
     Dates: start: 20200608, end: 20200608
  4. BOTOX [Suspect]
     Active Substance: ONABOTULINUMTOXINA
     Indication: MIGRAINE
     Dosage: 195 UNITS, SINGLE
     Dates: start: 20200918, end: 20200918

REACTIONS (1)
  - Pregnancy [Unknown]
